FAERS Safety Report 10022249 (Version 1)
Quarter: 2013Q4

REPORT INFORMATION
  Report Type: Spontaneous
  Country: US (occurrence: None)
  Receive Date: 20131217
  Receipt Date: 20131217
  Transmission Date: 20140711
  Serious: Yes (Other)
  Sender: FDA-Public Use
  Company Number: AUR-APL-2013-09942

PATIENT
  Age: 86 Year
  Sex: Male

DRUGS (4)
  1. LEVOFLOXACIN (LEVOFLOXACIN) [Suspect]
     Indication: NASAL CONGESTION
     Dates: start: 20130903, end: 20130909
  2. COZAAR (LOSARTAN POTASSIUM) [Concomitant]
  3. HCTZ (HYDROCHLOROTHIAZIDE) [Concomitant]
  4. LOPRESSOR (METOPROLOL TARTRATE) [Concomitant]

REACTIONS (1)
  - Tendonitis [None]
